FAERS Safety Report 8573966-6 (Version None)
Quarter: 2012Q3

REPORT INFORMATION
  Report Type: 
  Country: None (occurrence: None)
  Receive Date: 20120806
  Receipt Date: 20120801
  Transmission Date: 20120928
  Serious: Yes (Hospitalization)
  Sender: FDA-Public Use
  Company Number: PL-JNJFOC-20120800387

PATIENT
  Age: 76 Year
  Sex: Female

DRUGS (7)
  1. VITAMIN K TAB [Concomitant]
  2. WARFARIN SODIUM [Concomitant]
  3. XARELTO [Suspect]
     Indication: CEREBROVASCULAR ACCIDENT PROPHYLAXIS
     Route: 048
  4. XARELTO [Suspect]
     Indication: ATRIAL FIBRILLATION
     Route: 048
  5. ENOXAPARIN [Concomitant]
     Route: 058
  6. METOPROLOL TARTRATE [Concomitant]
  7. ATORVASTATIN [Concomitant]

REACTIONS (1)
  - CARDIOVERSION [None]
